FAERS Safety Report 9994796 (Version 2)
Quarter: 2014Q1

REPORT INFORMATION
  Report Type: Spontaneous
  Country: GB (occurrence: None)
  Receive Date: 20140306
  Receipt Date: 20140314
  Transmission Date: 20141002
  Serious: Yes (Hospitalization)
  Sender: FDA-Public Use
  Company Number: SYM-2014-18107

PATIENT
  Age: 42 Year
  Sex: Female

DRUGS (1)
  1. ZYBAN [Suspect]
     Indication: SMOKING CESSATION THERAPY
     Dosage: 300 MG (2 IN 1 D)
     Route: 048

REACTIONS (2)
  - Cerebral infarction [None]
  - Embolic stroke [None]
